FAERS Safety Report 10589874 (Version 1)
Quarter: 2014Q4

REPORT INFORMATION
  Report Type: Spontaneous
  Country: US (occurrence: None)
  Receive Date: 20141117
  Receipt Date: 20141117
  Transmission Date: 20150529
  Serious: Yes (Hospitalization)
  Sender: FDA-Public Use
  Company Number: None

PATIENT
  Age: 69 Year
  Sex: Female
  Weight: 82 kg

DRUGS (3)
  1. METFORMIN HYDROCHLORIDE. [Suspect]
     Active Substance: METFORMIN HYDROCHLORIDE
  2. CARBOPLATIN. [Suspect]
     Active Substance: CARBOPLATIN
  3. TAXOL [Suspect]
     Active Substance: PACLITAXEL

REACTIONS (4)
  - Subarachnoid haemorrhage [None]
  - Intracranial aneurysm [None]
  - Cerebral thrombosis [None]
  - Ruptured cerebral aneurysm [None]

NARRATIVE: CASE EVENT DATE: 20141111
